FAERS Safety Report 5155047-7 (Version None)
Quarter: 2006Q4

REPORT INFORMATION
  Report Type: 
  Country: None (occurrence: None)
  Receive Date: 20061121
  Receipt Date: 20061113
  Transmission Date: 20070319
  Serious: Yes (Other)
  Sender: FDA-Public Use
  Company Number: US-ELI_LILLY_AND_COMPANY-US200611002862

PATIENT
  Age: 74 Year
  Sex: Female

DRUGS (9)
  1. HUMULIN N [Suspect]
     Indication: DIABETES MELLITUS NON-INSULIN-DEPENDENT
     Dosage: UNK, UNKNOWN
  2. LANTUS [Concomitant]
     Indication: DIABETES MELLITUS NON-INSULIN-DEPENDENT
     Dosage: 50 U, EACH MORNING
     Dates: start: 20060201
  3. LANTUS [Concomitant]
     Dosage: 15 U, EACH EVENING
     Dates: start: 20060201
  4. LASIX [Concomitant]
     Dosage: UNK, UNKNOWN
  5. SYNTHROID [Concomitant]
     Dosage: UNK, UNKNOWN
  6. VERAPAMIL [Concomitant]
     Dosage: UNK, UNKNOWN
  7. VASOTEC [Concomitant]
     Dosage: UNK, UNKNOWN
  8. TRAVATAN [Concomitant]
     Dosage: UNK, UNKNOWN
  9. IBUPROFEN [Concomitant]
     Dosage: UNK, UNKNOWN

REACTIONS (15)
  - ABDOMINAL DISTENSION [None]
  - BLOOD GLUCOSE DECREASED [None]
  - BLOOD GLUCOSE FLUCTUATION [None]
  - BLOOD GLUCOSE INCREASED [None]
  - CHROMATOPSIA [None]
  - DIABETIC NEPHROPATHY [None]
  - DIABETIC RETINOPATHY [None]
  - DYSURIA [None]
  - FLUID RETENTION [None]
  - OEDEMA PERIPHERAL [None]
  - RENAL DISORDER [None]
  - URINE OUTPUT DECREASED [None]
  - VISION BLURRED [None]
  - VISUAL DISTURBANCE [None]
  - VITREOUS HAEMORRHAGE [None]
